FAERS Safety Report 8773188 (Version 1)
Quarter: 2012Q4

REPORT INFORMATION
  Report Type: 
  Country: CA (occurrence: CA)
  Receive Date: 20120907
  Receipt Date: 20120907
  Transmission Date: 20130627
  Serious: Yes (Other)
  Sender: FDA-Public Use
  Company Number: CHPA2012CA019204

PATIENT
  Age: 88 Year
  Sex: Female

DRUGS (3)
  1. MAALOX ANTACID QUICKDISLV TABS MS WLDBER [Suspect]
     Indication: PROPHYLAXIS
     Dosage: 1 to 3 DF, PER DAY
     Route: 048
     Dates: start: 1997, end: 201205
  2. GABAPENTIN [Concomitant]
     Indication: SPINAL COLUMN STENOSIS
     Dosage: Unk, Unk
  3. GABAPENTIN [Concomitant]
     Indication: AUTONOMIC NEUROPATHY

REACTIONS (4)
  - Hypertension [Not Recovered/Not Resolved]
  - Sensory loss [Not Recovered/Not Resolved]
  - Off label use [Unknown]
  - Incorrect drug administration duration [Unknown]
